FAERS Safety Report 5593531-2 (Version None)
Quarter: 2008Q1

REPORT INFORMATION
  Report Type: 
  Country: None (occurrence: None)
  Receive Date: 20080116
  Receipt Date: 20080109
  Transmission Date: 20080703
  Serious: Yes (Other)
  Sender: FDA-Public Use
  Company Number: BR-ROCHE-493183

PATIENT
  Age: 26 Year
  Sex: Female

DRUGS (3)
  1. ROACUTAN [Suspect]
     Indication: ACNE
     Route: 048
     Dates: start: 20070201, end: 20070201
  2. ROACUTAN [Suspect]
     Route: 048
     Dates: start: 20070301, end: 20070405
  3. MICROVLAR [Concomitant]
     Indication: CONTRACEPTION
     Route: 048
     Dates: start: 19990101, end: 20070329

REACTIONS (1)
  - ABORTION INDUCED [None]
